FAERS Safety Report 9102871 (Version 1)
Quarter: 2013Q1

REPORT INFORMATION
  Report Type: Report from Study
  Country: US (occurrence: US)
  Receive Date: 20130218
  Receipt Date: 20130218
  Transmission Date: 20140127
  Serious: Yes (Death, Life-Threatening, Hospitalization, Other)
  Sender: FDA-Public Use
  Company Number: US-BRISTOL-MYERS SQUIBB COMPANY-17222167

PATIENT
  Age: 49 Year
  Sex: Male
  Weight: 100.69 kg

DRUGS (7)
  1. SPRYCEL [Suspect]
     Indication: ACUTE LYMPHOCYTIC LEUKAEMIA
     Dosage: LAST DOSE: 04NOV12
     Route: 048
  2. CYTARABINE [Suspect]
     Indication: ACUTE LYMPHOCYTIC LEUKAEMIA
     Dosage: LAST DOSE: 31OCT12
     Route: 042
  3. DEXAMETHASONE [Suspect]
     Indication: ACUTE LYMPHOCYTIC LEUKAEMIA
     Dosage: LAST DOSE: 29OCT12
     Route: 042
  4. G-CSF [Suspect]
     Indication: ACUTE LYMPHOCYTIC LEUKAEMIA
     Dosage: LAST DOSE: 03NOV12
  5. LEUCOVORIN CALCIUM [Suspect]
     Indication: ACUTE LYMPHOCYTIC LEUKAEMIA
     Dosage: LAST DOSE:27OCT12
     Route: 042
  6. METHOTREXATE [Suspect]
     Indication: ACUTE LYMPHOCYTIC LEUKAEMIA
     Dosage: LAST DOSE:24OCT12
     Route: 042
  7. NORVASC [Concomitant]

REACTIONS (8)
  - Sudden death [Fatal]
  - Dyspnoea [Not Recovered/Not Resolved]
  - Neutrophil count decreased [Not Recovered/Not Resolved]
  - Device related infection [Not Recovered/Not Resolved]
  - Renal failure acute [Not Recovered/Not Resolved]
  - Septic shock [Unknown]
  - Mucosal inflammation [Unknown]
  - Pancytopenia [Unknown]
